FAERS Safety Report 9739510 (Version 4)
Quarter: 2014Q1

REPORT INFORMATION
  Report Type: Report from Study
  Country: DK (occurrence: DK)
  Receive Date: 20131209
  Receipt Date: 20140124
  Transmission Date: 20141002
  Serious: Yes (Hospitalization)
  Sender: FDA-Public Use
  Company Number: DK-ROCHE-1310499

PATIENT
  Age: 58 Year
  Sex: Female
  Weight: 81 kg

DRUGS (11)
  1. TRASTUZUMAB EMTANSINE [Suspect]
     Indication: BREAST CANCER METASTATIC
     Dosage: DATE OF LAST DOSE PRIOR TO BACTERAEMIA ONSET: 07/NOV/2013
     Route: 042
     Dates: start: 20130905
  2. RAMIPRIL [Concomitant]
     Route: 065
     Dates: start: 2007
  3. CARVEDILOL [Concomitant]
     Route: 065
     Dates: start: 2007
  4. OMEPRAZOLE [Concomitant]
     Route: 065
     Dates: start: 200801
  5. CLOPIDOGREL [Concomitant]
     Route: 065
     Dates: start: 20130223
  6. NORITREN [Concomitant]
     Route: 065
     Dates: start: 201301
  7. OXYNORM [Concomitant]
     Route: 065
     Dates: start: 20130107
  8. MAGNESIA [Concomitant]
     Route: 065
     Dates: start: 20130107
  9. PANODIL [Concomitant]
     Route: 065
     Dates: start: 200701
  10. PREDNISOLON [Concomitant]
     Route: 065
     Dates: start: 20131016
  11. AMLODIPIN [Concomitant]
     Route: 065
     Dates: start: 20131016

REACTIONS (1)
  - Bacteraemia [Recovered/Resolved]
